FAERS Safety Report 18997191 (Version 3)
Quarter: 2022Q1

REPORT INFORMATION
  Report Type: Report from Study
  Country: DE (occurrence: DE)
  Receive Date: 20210311
  Receipt Date: 20220202
  Transmission Date: 20220424
  Serious: Yes (Hospitalization, Other)
  Sender: FDA-Public Use
  Company Number: DE-CELGENE-DEU-20210301628

PATIENT
  Age: 28 Year
  Sex: Female
  Weight: 62.4 kg

DRUGS (30)
  1. OZANIMOD [Suspect]
     Active Substance: OZANIMOD
     Indication: Colitis ulcerative
     Dosage: 1 MILLIGRAM
     Route: 048
     Dates: start: 20170612, end: 20210122
  2. OZANIMOD [Suspect]
     Active Substance: OZANIMOD
     Route: 048
     Dates: start: 20170712, end: 20170719
  3. OZANIMOD [Suspect]
     Active Substance: OZANIMOD
     Route: 048
     Dates: start: 20170719, end: 20170828
  4. OZANIMOD [Suspect]
     Active Substance: OZANIMOD
     Route: 048
     Dates: start: 20170719, end: 20171009
  5. OZANIMOD [Suspect]
     Active Substance: OZANIMOD
     Route: 048
     Dates: start: 20170830, end: 20171009
  6. OZANIMOD [Suspect]
     Active Substance: OZANIMOD
     Route: 048
     Dates: start: 20171009, end: 20171115
  7. OZANIMOD [Suspect]
     Active Substance: OZANIMOD
     Route: 048
     Dates: start: 20171219, end: 20180202
  8. OZANIMOD [Suspect]
     Active Substance: OZANIMOD
     Route: 048
     Dates: start: 20180202, end: 20180427
  9. OZANIMOD [Suspect]
     Active Substance: OZANIMOD
     Route: 048
     Dates: start: 20180427, end: 20180802
  10. OZANIMOD [Suspect]
     Active Substance: OZANIMOD
     Route: 048
     Dates: start: 20180802, end: 20181025
  11. OZANIMOD [Suspect]
     Active Substance: OZANIMOD
     Route: 048
     Dates: start: 20180427, end: 20181025
  12. OZANIMOD [Suspect]
     Active Substance: OZANIMOD
     Route: 048
     Dates: start: 20180802, end: 20181025
  13. OZANIMOD [Suspect]
     Active Substance: OZANIMOD
     Route: 048
     Dates: start: 20181025, end: 20190116
  14. OZANIMOD [Suspect]
     Active Substance: OZANIMOD
     Route: 048
     Dates: start: 20190116, end: 20190410
  15. OZANIMOD [Suspect]
     Active Substance: OZANIMOD
     Route: 048
     Dates: start: 20190410, end: 20190705
  16. OZANIMOD [Suspect]
     Active Substance: OZANIMOD
     Route: 048
     Dates: start: 20190705, end: 20190925
  17. OZANIMOD [Suspect]
     Active Substance: OZANIMOD
     Route: 048
     Dates: start: 20190925, end: 20191211
  18. OZANIMOD [Suspect]
     Active Substance: OZANIMOD
     Route: 048
     Dates: start: 20191211, end: 20200303
  19. OZANIMOD [Suspect]
     Active Substance: OZANIMOD
     Route: 048
     Dates: start: 20200303, end: 20200520
  20. OZANIMOD [Suspect]
     Active Substance: OZANIMOD
     Route: 048
     Dates: start: 20200520, end: 20200812
  21. OZANIMOD [Suspect]
     Active Substance: OZANIMOD
     Route: 048
     Dates: start: 20200812
  22. OZANIMOD [Suspect]
     Active Substance: OZANIMOD
     Route: 048
     Dates: start: 20201104
  23. OZANIMOD [Suspect]
     Active Substance: OZANIMOD
     Route: 048
     Dates: start: 20201201, end: 20210119
  24. OZANIMOD [Suspect]
     Active Substance: OZANIMOD
     Route: 048
     Dates: start: 20210119, end: 20210324
  25. HERBALS [Concomitant]
     Active Substance: HERBALS
     Indication: Nasopharyngitis
     Route: 048
     Dates: start: 20170508, end: 20170828
  26. PROPOFOL [Concomitant]
     Active Substance: PROPOFOL
     Indication: Sedative therapy
     Dosage: 220 MILLIGRAM
     Route: 041
     Dates: start: 20170602, end: 20170602
  27. PROPOFOL [Concomitant]
     Active Substance: PROPOFOL
     Dosage: 240 MILLIGRAM
     Route: 041
     Dates: start: 20180427, end: 20180427
  28. PROPOFOL [Concomitant]
     Active Substance: PROPOFOL
     Dosage: 200 MILLIGRAM
     Route: 041
     Dates: start: 20190410, end: 20190410
  29. TRAMADOL [Concomitant]
     Active Substance: TRAMADOL
     Indication: Abdominal pain
     Dosage: 20 DROPS
     Route: 048
     Dates: start: 201605
  30. Salofalk [Concomitant]
     Indication: Colitis ulcerative
     Dosage: 1 GRAM
     Route: 048
     Dates: start: 201501

REACTIONS (2)
  - Pregnancy [Recovered/Resolved]
  - Abortion spontaneous [Recovered/Resolved]

NARRATIVE: CASE EVENT DATE: 20210226
